FAERS Safety Report 5910841-7 (Version None)
Quarter: 2008Q4

REPORT INFORMATION
  Report Type: 
  Country: None (occurrence: None)
  Receive Date: 20081007
  Receipt Date: 20080924
  Transmission Date: 20090506
  Serious: Yes (Hospitalization, Other)
  Sender: FDA-Public Use
  Company Number: PHEH2007US03275

PATIENT
  Sex: Male

DRUGS (38)
  1. ZOMETA [Suspect]
     Indication: MULTIPLE MYELOMA
     Dosage: UNK
     Dates: end: 20061001
  2. AREDIA [Suspect]
     Indication: MULTIPLE MYELOMA
  3. THALIDOMIDE [Concomitant]
     Indication: MULTIPLE MYELOMA
     Dosage: 100 MG, QD
     Dates: start: 20060601, end: 20060919
  4. THALIDOMIDE [Concomitant]
     Dosage: 200 MG, QD
     Dates: start: 20060920
  5. PREDNISONE [Concomitant]
  6. CHEMOTHERAPEUTICS NOS [Concomitant]
  7. RADIATION THERAPY [Concomitant]
  8. PROCRIT [Concomitant]
  9. OXYGEN [Concomitant]
  10. MS CONTIN [Concomitant]
     Indication: PAIN
     Dosage: 100 MG, UNK
  11. OXYCONTIN [Concomitant]
     Indication: PAIN
  12. KADIAN ^KNOLL^ [Concomitant]
     Dosage: UNK
     Dates: start: 20040101
  13. METHADONE HCL [Concomitant]
  14. LIDOCAINE [Concomitant]
  15. NEUROTON [Concomitant]
     Dosage: 300 MG, UNK
  16. ZANAFLEX [Concomitant]
     Dosage: 4 MG, UNK
  17. NAPROSYN [Concomitant]
  18. ZOLOFT [Concomitant]
     Dosage: 50 MG, UNK
  19. AMBIEN [Concomitant]
     Dosage: 10 MG, UNK
  20. LYRICA [Concomitant]
  21. PHYSICAL THERAPY [Concomitant]
  22. ZITHROMAX [Concomitant]
  23. KEFLEX [Concomitant]
  24. METFORMIN HCL [Concomitant]
     Dosage: 50 MG, UNK
  25. FLOMAX [Concomitant]
     Dosage: 0.4 UNK, UNK
  26. ATENOLOL [Concomitant]
     Dosage: 100 MG, UNK
  27. NORVASC [Concomitant]
     Dosage: 5 MG, UNK
  28. PLAVIX [Concomitant]
  29. ASPIRIN [Concomitant]
  30. ALLEGRA [Concomitant]
     Dosage: 180 MG, UNK
  31. ALBUTEROL [Concomitant]
  32. NEXIUM [Concomitant]
     Dosage: 40 MG, UNK
  33. CLONAZEPAM [Concomitant]
  34. SERTRALINE [Concomitant]
  35. SYNACORT [Concomitant]
  36. NITROFURAN [Concomitant]
  37. SODIUM BICARBONATE [Concomitant]
     Dosage: UNK
  38. GENTEAL DROPS (NVO) [Concomitant]

REACTIONS (24)
  - ANXIETY [None]
  - ASTHENIA [None]
  - BACK PAIN [None]
  - BLOOD IMMUNOGLOBULIN G INCREASED [None]
  - BONE DISORDER [None]
  - BOWEN'S DISEASE [None]
  - CHRONIC OBSTRUCTIVE PULMONARY DISEASE [None]
  - CONFUSIONAL STATE [None]
  - DECREASED INTEREST [None]
  - DYSPHAGIA [None]
  - DYSPNOEA [None]
  - GENERAL PHYSICAL HEALTH DETERIORATION [None]
  - HAEMATURIA [None]
  - HALLUCINATION [None]
  - MULTIPLE MYELOMA [None]
  - MYOCLONUS [None]
  - OSTEOMYELITIS [None]
  - OSTEONECROSIS [None]
  - PAIN [None]
  - PARAPLEGIA [None]
  - SLEEP DISORDER DUE TO A GENERAL MEDICAL CONDITION [None]
  - SQUAMOUS CELL CARCINOMA OF SKIN [None]
  - TOOTH EXTRACTION [None]
  - URINARY TRACT INFECTION [None]
